FAERS Safety Report 9130377 (Version 1)
Quarter: 2013Q1

REPORT INFORMATION
  Report Type: Spontaneous
  Country: DE (occurrence: DE)
  Receive Date: 20130301
  Receipt Date: 20130301
  Transmission Date: 20140127
  Serious: Yes (Other)
  Sender: FDA-Public Use
  Company Number: DE-AMGEN-DEUSP2013013651

PATIENT
  Age: 66 Year
  Sex: Female

DRUGS (5)
  1. ENBREL [Suspect]
     Indication: RHEUMATOID ARTHRITIS
     Dosage: 25 MG, 2X/WEEK
     Dates: start: 20100107
  2. MTX HEXAL [Concomitant]
     Dosage: 15 MG, UNK
     Route: 058
  3. PREDNISOLONE [Concomitant]
     Dosage: 5 - 7.5MG, UNK
  4. FOLIC ACID [Concomitant]
     Dosage: UNK
  5. CALCICARE                          /01424301/ [Concomitant]
     Dosage: UNK

REACTIONS (1)
  - Nervous system disorder [Recovered/Resolved]
